FAERS Safety Report 6691662-7 (Version None)
Quarter: 2010Q2

REPORT INFORMATION
  Report Type: 
  Country: None (occurrence: None)
  Receive Date: 20100422
  Receipt Date: 20090810
  Transmission Date: 20101027
  Serious: No
  Sender: FDA-Public Use
  Company Number: US-ASTRAZENECA-2009SE08265

PATIENT
  Sex: Female

DRUGS (1)
  1. METOPROLOL SUCCINATE [Suspect]
     Route: 048

REACTIONS (6)
  - ABNORMAL SENSATION IN EYE [None]
  - ANXIETY [None]
  - BLOOD PRESSURE FLUCTUATION [None]
  - HEADACHE [None]
  - HYPOAESTHESIA [None]
  - PAIN [None]
